FAERS Safety Report 9221540 (Version 1)
Quarter: 2013Q2

REPORT INFORMATION
  Report Type: Spontaneous
  Country: GB (occurrence: None)
  Receive Date: 20130408
  Receipt Date: 20130408
  Transmission Date: 20140414
  Serious: Yes (Congenital Anomaly, Other)
  Sender: FDA-Public Use
  Company Number: AUR-APL-2013-02833

PATIENT
  Sex: Male
  Weight: 1.85 kg

DRUGS (5)
  1. LAMOTRIGINE (LAMOTRIGINE) [Suspect]
     Indication: EPILEPSY
     Route: 064
     Dates: start: 20110916, end: 20120425
  2. NEOVIN(FOLIC ACID) [Concomitant]
  3. CELESTAN(BETAMETHASONE) [Concomitant]
  4. UTROGEST(PROGESTERONE) [Concomitant]
  5. IBUPROFEN ( IBUPROFEN) [Concomitant]

REACTIONS (14)
  - Maternal drugs affecting foetus [None]
  - Breech presentation [None]
  - Transposition of the great vessels [None]
  - Caesarean section [None]
  - Premature baby [None]
  - Neonatal respiratory distress syndrome [None]
  - Atrial septal defect [None]
  - Deep vein thrombosis [None]
  - Small intestinal perforation [None]
  - Food intolerance [None]
  - Patent ductus arteriosus [None]
  - Apgar score low [None]
  - Blood pH decreased [None]
  - Constipation [None]
